FAERS Safety Report 17765062 (Version 3)
Quarter: 2020Q2

REPORT INFORMATION
  Report Type: Report from Study
  Country: HU (occurrence: HU)
  Receive Date: 20200511
  Receipt Date: 20200529
  Transmission Date: 20200714
  Serious: Yes (Death, Hospitalization, Other)
  Sender: FDA-Public Use
  Company Number: NVSC2020HU093921

PATIENT
  Age: 64 Year
  Sex: Female

DRUGS (4)
  1. ZOLEDRONIC ACID [Suspect]
     Active Substance: ZOLEDRONIC ACID
     Indication: BREAST CANCER
     Dosage: 4 MG, Q4W (EVERY 28TH DAY)
     Route: 042
     Dates: start: 20180517, end: 20200401
  2. STEROFUNDIN [Concomitant]
     Active Substance: CALCIUM CHLORIDE\MAGNESIUM CHLORIDE\POTASSIUM CHLORIDE\SODIUM ACETATE\SODIUM CHLORIDE
     Indication: PRODUCT USED FOR UNKNOWN INDICATION
     Dosage: 1000 ML
     Route: 042
  3. KISQALI [Suspect]
     Active Substance: RIBOCICLIB
     Indication: BREAST CANCER
     Dosage: 600 OT, QD (1X) (TABLET)
     Route: 048
     Dates: start: 20200318, end: 20200517
  4. FASLODEX [Concomitant]
     Active Substance: FULVESTRANT
     Indication: BREAST CANCER
     Dosage: 500 MG, Q4W (EVERY 28TH DAY)
     Route: 030
     Dates: start: 20200225, end: 20200513

REACTIONS (17)
  - Vaginal haemorrhage [Recovered/Resolved]
  - Accessory spleen [Unknown]
  - Hypotonia [Unknown]
  - Condition aggravated [Unknown]
  - Bone lesion [Unknown]
  - Ascites [Unknown]
  - Breast cancer [Fatal]
  - Metastases to bone [Unknown]
  - Lymphadenopathy [Unknown]
  - Pain [Unknown]
  - Gastric dilatation [Unknown]
  - Ovarian cyst [Unknown]
  - Spinal osteoarthritis [Unknown]
  - Hepatic steatosis [Unknown]
  - Thyroid mass [Unknown]
  - Lung disorder [Unknown]
  - Ovarian disorder [Unknown]

NARRATIVE: CASE EVENT DATE: 20191018
